FAERS Safety Report 5734347-3 (Version None)
Quarter: 2008Q2

REPORT INFORMATION
  Report Type: 
  Country: None (occurrence: None)
  Receive Date: 20080507
  Receipt Date: 20080505
  Transmission Date: 20081010
  Serious: Yes (Other)
  Sender: FDA-Public Use
  Company Number: A0726435A

PATIENT
  Age: 65 Year
  Sex: Male

DRUGS (1)
  1. UREA HYDROGEN PEROXIDE DROP(S)   (DEBROX) [Suspect]
     Indication: CERUMEN REMOVAL
     Dosage: EAR DROPS
     Route: 001

REACTIONS (1)
  - EAR HAEMORRHAGE [None]
